FAERS Safety Report 16893022 (Version 2)
Quarter: 2022Q1

REPORT INFORMATION
  Report Type: Report from Study
  Country: US (occurrence: US)
  Receive Date: 20191008
  Receipt Date: 20220212
  Transmission Date: 20220424
  Serious: Yes (Other)
  Sender: FDA-Public Use
  Company Number: US-AMGEN-USASP2019162523

PATIENT
  Age: 74 Year
  Sex: Male

DRUGS (4)
  1. REPATHA [Suspect]
     Active Substance: EVOLOCUMAB
     Indication: Blood cholesterol increased
     Dosage: 140 MILLIGRAM, Q2WK
     Route: 065
     Dates: start: 2017
  2. COVID-19 VACCINE [Concomitant]
     Dosage: UNK
     Dates: start: 20210203, end: 20210203
  3. COVID-19 VACCINE [Concomitant]
     Dosage: UNK
     Dates: start: 20210226, end: 20210226
  4. COVID-19 VACCINE [Concomitant]
     Dosage: UNK
     Dates: start: 20211027, end: 20211027

REACTIONS (14)
  - Myocardial infarction [Unknown]
  - Coronary artery occlusion [Unknown]
  - Skin tightness [Unknown]
  - Balance disorder [Unknown]
  - Cyst drainage [Unknown]
  - Wrong technique in product usage process [Unknown]
  - Accidental exposure to product [Unknown]
  - Vascular cauterisation [Unknown]
  - Dry skin [Unknown]
  - Skin exfoliation [Unknown]
  - Scratch [Unknown]
  - Skin haemorrhage [Unknown]
  - Product communication issue [Unknown]
  - Erythema [Unknown]

NARRATIVE: CASE EVENT DATE: 20170101
